FAERS Safety Report 6302017-9 (Version None)
Quarter: 2009Q3

REPORT INFORMATION
  Report Type: 
  Country: None (occurrence: None)
  Receive Date: 20090807
  Receipt Date: 20090728
  Transmission Date: 20100115
  Serious: Yes (Death)
  Sender: FDA-Public Use
  Company Number: JP-PFIZER INC-2009230122

PATIENT
  Age: 83 Year

DRUGS (10)
  1. CELECOXIB [Suspect]
     Indication: RHEUMATOID ARTHRITIS
     Dosage: 200 MG, UNK
     Route: 048
     Dates: start: 20071211, end: 20090331
  2. INDOMETHACIN [Concomitant]
     Indication: MUSCULOSKELETAL PAIN
     Dosage: UNK
  3. AZULFIDINE EN-TABS [Concomitant]
  4. LAXOBERON [Concomitant]
     Route: 048
  5. PURSENNIDE [Concomitant]
  6. PREDNISOLONE [Concomitant]
  7. CYANOCOBALAMIN [Concomitant]
  8. LIPITOR [Concomitant]
     Dosage: 5 MG, UNK
  9. BLOPRESS [Concomitant]
  10. MOHRUS [Concomitant]

REACTIONS (1)
  - DEATH [None]
